FAERS Safety Report 4565633-0 (Version None)
Quarter: 2005Q1

REPORT INFORMATION
  Report Type: 
  Country: None (occurrence: None)
  Receive Date: 20050125
  Receipt Date: 20050125
  Transmission Date: 20050727
  Serious: Yes (Hospitalization)
  Sender: FDA-Public Use
  Company Number: None

PATIENT
  Age: 75 Year
  Sex: Male
  Weight: 67.7 kg

DRUGS (3)
  1. DOCETAXEL [Suspect]
     Indication: NON-SMALL CELL LUNG CANCER STAGE IV
     Dosage: 136 MG Q21 DAYS INTRAVENOUS
     Route: 042
     Dates: start: 20050119, end: 20050119
  2. IRESSA [Suspect]
     Indication: NON-SMALL CELL LUNG CANCER STAGE IV
     Dosage: 250 MG  QD ORAL
     Route: 048
     Dates: start: 20050119, end: 20050123
  3. FENTANYL [Concomitant]

REACTIONS (3)
  - ARTHRALGIA [None]
  - CONFUSIONAL STATE [None]
  - MIOSIS [None]
